FAERS Safety Report 10641027 (Version 6)
Quarter: 2016Q3

REPORT INFORMATION
  Report Type: Spontaneous
  Country: US (occurrence: US)
  Receive Date: 20141209
  Receipt Date: 20160701
  Transmission Date: 20161109
  Serious: Yes (Other)
  Sender: FDA-Public Use
  Company Number: US-009507513-1412USA003666

PATIENT
  Sex: Male
  Weight: 98.41 kg

DRUGS (2)
  1. PRILOSEC [Concomitant]
     Active Substance: OMEPRAZOLE MAGNESIUM
     Indication: GASTROOESOPHAGEAL REFLUX DISEASE
     Dosage: UNK
     Route: 048
     Dates: start: 199502
  2. PROPECIA [Suspect]
     Active Substance: FINASTERIDE
     Indication: ALOPECIA
     Dosage: 1 MG, 1 TAB, QD
     Route: 048
     Dates: start: 20040824, end: 201008

REACTIONS (16)
  - Secondary hypogonadism [Not Recovered/Not Resolved]
  - Erectile dysfunction [Not Recovered/Not Resolved]
  - Blood testosterone abnormal [Unknown]
  - Sexual dysfunction [Not Recovered/Not Resolved]
  - Libido decreased [Not Recovered/Not Resolved]
  - Flushing [Unknown]
  - Eczema [Unknown]
  - Hypothalamo-pituitary disorder [Unknown]
  - Fatigue [Not Recovered/Not Resolved]
  - Hypothalamo-pituitary disorder [Unknown]
  - Back pain [Unknown]
  - Asthenia [Not Recovered/Not Resolved]
  - Elbow operation [Unknown]
  - Growth hormone-producing pituitary tumour [Unknown]
  - Skin disorder [Unknown]
  - Rosacea [Unknown]

NARRATIVE: CASE EVENT DATE: 200902
